FAERS Safety Report 6356210-X (Version None)
Quarter: 2009Q3

REPORT INFORMATION
  Report Type: 
  Country: None (occurrence: None)
  Receive Date: 20090915
  Receipt Date: 20090909
  Transmission Date: 20100115
  Serious: Yes (Death, Hospitalization)
  Sender: FDA-Public Use
  Company Number: IT-BAYER-200919800GPV

PATIENT
  Age: 77 Year
  Sex: Female

DRUGS (3)
  1. AVELOX [Suspect]
     Indication: TOOTH ABSCESS
     Dosage: TOTAL DAILY DOSE: 400 MG  UNIT DOSE: 400 MG
     Route: 048
     Dates: start: 20090415, end: 20090422
  2. KLACID [Suspect]
     Indication: TOOTH ABSCESS
     Dosage: TOTAL DAILY DOSE: 1000 MG  UNIT DOSE: 500 MG
     Route: 048
     Dates: start: 20090415, end: 20090422
  3. METRONIDAZOLE [Suspect]
     Indication: TOOTH ABSCESS
     Dosage: UNIT DOSE: 250 MG
     Route: 048
     Dates: start: 20090415, end: 20090422

REACTIONS (3)
  - GENERALISED ERYTHEMA [None]
  - HEPATORENAL FAILURE [None]
  - PRURITUS [None]
